FAERS Safety Report 24304434 (Version 1)
Quarter: 2024Q3

REPORT INFORMATION
  Report Type: Spontaneous
  Country: US (occurrence: None)
  Receive Date: 20240910
  Receipt Date: 20240910
  Transmission Date: 20241017
  Serious: Yes (Hospitalization, Other)
  Sender: Public
  Company Number: None

PATIENT
  Age: 60 Year
  Sex: Female
  Weight: 87.9 kg

DRUGS (8)
  1. ESTRADIOL [Suspect]
     Active Substance: ESTRADIOL
     Indication: Menopausal symptoms
     Dosage: 1 DF DOSAGE FORM 2X WEEK (TU + FR) TRANSDERMAL
     Route: 062
     Dates: start: 20240424
  2. ESTRADIOL [Suspect]
     Active Substance: ESTRADIOL
     Indication: Menopausal symptoms
     Dosage: OTHER FREQUENCY : 2-3 WEEK;?
     Route: 062
     Dates: start: 20240307
  3. Progesterone 100mg capsulse [Concomitant]
  4. montelukast 10mg daily [Concomitant]
  5. duloxetine 30mg DR daily [Concomitant]
  6. ASPIRIN [Concomitant]
     Active Substance: ASPIRIN
  7. Ibuprofen PRN [Concomitant]
  8. omeprazole 20mg DR daily [Concomitant]

REACTIONS (2)
  - Pulmonary embolism [None]
  - Hypoxia [None]

NARRATIVE: CASE EVENT DATE: 20240711
